FAERS Safety Report 8121170 (Version 2)
Quarter: 2012Q4

REPORT INFORMATION
  Report Type: 
  Country: US (occurrence: US)
  Receive Date: 20110906
  Receipt Date: 20121012
  Transmission Date: 20130627
  Serious: Yes (Other)
  Sender: FDA-Public Use
  Company Number: PHHO2011US14381

PATIENT
  Age: 84 Year
  Sex: Female
  Weight: 74.4 kg

DRUGS (1)
  1. TASIGNA [Suspect]
     Indication: CHRONIC MYELOID LEUKAEMIA
     Dosage: UNK
     Route: 048
     Dates: start: 20080922

REACTIONS (1)
  - Paraproteinaemia [Not Recovered/Not Resolved]
